FAERS Safety Report 18884591 (Version 3)
Quarter: 2021Q1

REPORT INFORMATION
  Report Type: Report from Study
  Country: NL (occurrence: NL)
  Receive Date: 20210212
  Receipt Date: 20210324
  Transmission Date: 20210420
  Serious: Yes (Life-Threatening, Hospitalization, Other)
  Sender: FDA-Public Use
  Company Number: NL-BRISTOL-MYERS SQUIBB COMPANY-BMS-2020-111987

PATIENT
  Age: 76 Year
  Sex: Male

DRUGS (16)
  1. PEGFILGRASTIM [Suspect]
     Active Substance: PEGFILGRASTIM
     Indication: NON-HODGKIN^S LYMPHOMA
     Dosage: 6 MG, 1 TIME A DAY FOR 1 DAY
     Route: 058
     Dates: start: 20201228, end: 20201228
  2. COTRIMOXAZOLE [Concomitant]
     Active Substance: SULFAMETHOXAZOLE\TRIMETHOPRIM
     Indication: PRODUCT USED FOR UNKNOWN INDICATION
     Dosage: 80/400 MG, OD
     Route: 048
     Dates: start: 20201218, end: 20210103
  3. METOCLOPRAMIDE. [Concomitant]
     Active Substance: METOCLOPRAMIDE
     Indication: NAUSEA
     Dosage: 10 MILLIGRAM, 3DD ZN
     Route: 048
     Dates: start: 20210107, end: 20210107
  4. OXYNORM [Concomitant]
     Active Substance: OXYCODONE HYDROCHLORIDE
     Indication: PAIN
     Dosage: 5 MILLIGRAM, QID ZN
     Route: 048
     Dates: start: 20201228, end: 20210103
  5. NIVOLUMAB [Suspect]
     Active Substance: NIVOLUMAB
     Indication: NON-HODGKIN^S LYMPHOMA
     Dosage: 210 MG, 1X /CYCLE
     Route: 042
     Dates: start: 20201223, end: 20210127
  6. VALACICLOVIR [Concomitant]
     Active Substance: VALACYCLOVIR HYDROCHLORIDE
     Dosage: 500 MILLIGRAM, BID
     Route: 048
     Dates: start: 20210107, end: 20210107
  7. OMEPRAZOL [OMEPRAZOLE] [Concomitant]
     Active Substance: OMEPRAZOLE
     Indication: GASTROINTESTINAL DISORDER PROPHYLAXIS
     Dosage: 40 MILLIGRAM, QD
     Route: 048
     Dates: start: 20210107, end: 20210107
  8. GENTAMICINE [GENTAMICIN] [Concomitant]
     Active Substance: GENTAMICIN
     Indication: ANTIBIOTIC THERAPY
     Dosage: 360 MILLIGRAM, QD
     Route: 042
     Dates: start: 20210107, end: 20210107
  9. CEFTRIAXON [Concomitant]
     Active Substance: CEFTRIAXONE
     Indication: ANTIBIOTIC THERAPY
     Dosage: 2000 MILLIGRAM, TID
     Route: 042
     Dates: start: 20210107, end: 20210107
  10. LOSARTAN. [Concomitant]
     Active Substance: LOSARTAN
     Indication: HYPERTENSION
     Dosage: 50 MILLIGRAM, QD
     Route: 048
     Dates: start: 20201225, end: 20201228
  11. GEMCITABINE HYDROCHLORIDE. [Suspect]
     Active Substance: GEMCITABINE HYDROCHLORIDE
     Indication: NON-HODGKIN^S LYMPHOMA
     Dosage: 1800 MG, 1X /CYCLE FOR 27 DAYS
     Route: 042
     Dates: start: 20201224, end: 20210119
  12. PREDNISOLON [PREDNISOLONE] [Concomitant]
     Active Substance: PREDNISOLONE
     Indication: INFECTION
     Dosage: 20 MILLIGRAM, QD
     Route: 042
     Dates: start: 20201229, end: 20201229
  13. PREDNISOLON [PREDNISOLONE] [Concomitant]
     Active Substance: PREDNISOLONE
     Dosage: 40 MILLIGRAM, QD
     Route: 042
     Dates: start: 20201229, end: 20210103
  14. MORPHINE [Concomitant]
     Active Substance: MORPHINE
     Indication: PAIN
     Dosage: 2 MILLIGRAM, ZN
     Route: 042
     Dates: start: 20210107, end: 20210107
  15. OXALIPLATIN. [Suspect]
     Active Substance: OXALIPLATIN
     Indication: NON-HODGKIN^S LYMPHOMA
     Dosage: 180 MG, 1X /CYCLE FOR 27 DAYS
     Route: 042
     Dates: start: 20201224, end: 20210119
  16. VALACICLOVIR [Concomitant]
     Active Substance: VALACYCLOVIR HYDROCHLORIDE
     Indication: PROPHYLAXIS
     Dosage: 500 MILLIGRAM, BID
     Route: 048
     Dates: start: 20201224, end: 20201228

REACTIONS (3)
  - Staphylococcal sepsis [Recovered/Resolved]
  - Pyrexia [Not Recovered/Not Resolved]
  - Haemophagocytic lymphohistiocytosis [Not Recovered/Not Resolved]

NARRATIVE: CASE EVENT DATE: 20201228
